FAERS Safety Report 9338159 (Version 1)
Quarter: 2013Q2

REPORT INFORMATION
  Report Type: Spontaneous
  Country: US (occurrence: US)
  Receive Date: 20130610
  Receipt Date: 20130610
  Transmission Date: 20140414
  Serious: Yes (Hospitalization, Other)
  Sender: FDA-Public Use
  Company Number: US-PAR PHARMACEUTICAL, INC-2013SCPR005954

PATIENT
  Sex: 0

DRUGS (1)
  1. BUPROPION HCL XL [Suspect]
     Indication: PRODUCT USED FOR UNKNOWN INDICATION
     Dosage: UNK, UNKNOWN
     Route: 045

REACTIONS (4)
  - Serotonin syndrome [Unknown]
  - Convulsion [Unknown]
  - Drug abuse [Unknown]
  - Drug dependence [Unknown]
